FAERS Safety Report 23271290 (Version 1)
Quarter: 2023Q4

REPORT INFORMATION
  Report Type: Spontaneous
  Country: RU (occurrence: None)
  Receive Date: 20231207
  Receipt Date: 20231207
  Transmission Date: 20240110
  Serious: Yes (Other)
  Sender: FDA-Public Use
  Company Number: RU-ROCHE-3467285

PATIENT
  Age: 43 Year
  Sex: Female

DRUGS (2)
  1. ATEZOLIZUMAB [Suspect]
     Active Substance: ATEZOLIZUMAB
     Indication: Breast cancer
     Route: 065
     Dates: start: 20200917, end: 20210204
  2. PACLITAXEL [Suspect]
     Active Substance: PACLITAXEL
     Indication: Breast cancer
     Route: 065
     Dates: start: 20200917, end: 20210204

REACTIONS (4)
  - Neutropenia [Unknown]
  - Metastases to adrenals [Unknown]
  - Hepatic cyst [Unknown]
  - Adrenal neoplasm [Unknown]
